FAERS Safety Report 18120035 (Version 1)
Quarter: 2020Q3

REPORT INFORMATION
  Report Type: Spontaneous
  Country: BE (occurrence: BE)
  Receive Date: 20200806
  Receipt Date: 20200806
  Transmission Date: 20201103
  Serious: Yes (Other)
  Sender: FDA-Public Use
  Company Number: BE-SUN PHARMACEUTICAL INDUSTRIES LTD-2020RR-256316

PATIENT
  Age: 50 Year
  Sex: Female

DRUGS (1)
  1. ALENDRONIC ACID [Suspect]
     Active Substance: ALENDRONIC ACID
     Indication: OSTEOPOROSIS
     Dosage: UNK
     Route: 065

REACTIONS (3)
  - Disease progression [Unknown]
  - Therapeutic product effect incomplete [Unknown]
  - Drug ineffective [Unknown]
